FAERS Safety Report 6711898-6 (Version None)
Quarter: 2010Q2

REPORT INFORMATION
  Report Type: 
  Country: None (occurrence: None)
  Receive Date: 20100505
  Receipt Date: 20100427
  Transmission Date: 20101027
  Serious: Yes (Other)
  Sender: FDA-Public Use
  Company Number: US-MERCK-1001USA01549

PATIENT
  Age: 64 Year
  Sex: Female
  Weight: 67 kg

DRUGS (3)
  1. FOSAMAX [Suspect]
     Indication: OSTEOPOROSIS
     Route: 048
     Dates: start: 20030101, end: 20090101
  2. FOSAMAX [Suspect]
     Route: 048
     Dates: start: 20010501
  3. HORMONES (UNSPECIFIED) [Concomitant]
     Route: 065
     Dates: start: 19850101

REACTIONS (9)
  - ADVERSE EVENT [None]
  - ARTHROPATHY [None]
  - IMPAIRED HEALING [None]
  - INFECTION [None]
  - ORAL TORUS [None]
  - OSTEONECROSIS [None]
  - OSTEONECROSIS OF JAW [None]
  - STOMATITIS [None]
  - ULCER [None]
